FAERS Safety Report 4413389-4 (Version None)
Quarter: 2004Q2

REPORT INFORMATION
  Report Type: 
  Country: None (occurrence: None)
  Receive Date: 20040630
  Receipt Date: 20040317
  Transmission Date: 20050107
  Serious: No
  Sender: FDA-Public Use
  Company Number: 04P-163-0254350

PATIENT
  Age: 48 Year
  Sex: Female
  Weight: 58.9676 kg

DRUGS (9)
  1. HUMIRA [Suspect]
     Indication: RHEUMATOID ARTHRITIS
     Dosage: 40 MG, 1 IN 2 WK, SUBCUTANEOUS
     Route: 058
     Dates: start: 20030401
  2. HYDROCHLOROQUINE PHOSPHATE [Concomitant]
  3. SULINDAC [Concomitant]
  4. PREDNISONE TAB [Concomitant]
  5. RAMIPRIL [Concomitant]
  6. ALENDRONATE SODIUM [Concomitant]
  7. ESOMEPRAZOLE [Concomitant]
  8. RANITIDINE HYDROCHLORIDE [Concomitant]
  9. FLUCONAZOLE [Concomitant]

REACTIONS (3)
  - INJECTION SITE HAEMORRHAGE [None]
  - INJECTION SITE PAIN [None]
  - INJECTION SITE SWELLING [None]
